FAERS Safety Report 22692614 (Version 5)
Quarter: 2023Q4

REPORT INFORMATION
  Report Type: Spontaneous
  Country: US (occurrence: US)
  Receive Date: 20230711
  Receipt Date: 20231026
  Transmission Date: 20240110
  Serious: No
  Sender: FDA-Public Use
  Company Number: US-PFIZER INC-202300238260

PATIENT
  Age: 7 Year
  Sex: Male
  Weight: 18.14 kg

DRUGS (10)
  1. GENOTROPIN [Suspect]
     Active Substance: SOMATROPIN
     Indication: Short stature
     Dosage: UNK, MONTHLY
  2. GENOTROPIN [Suspect]
     Active Substance: SOMATROPIN
     Dosage: 0.6 MG, DAILY
     Dates: start: 20230615
  3. DUPIXENT [Concomitant]
     Active Substance: DUPILUMAB
     Indication: Eczema
     Dosage: UNK UNK, MONTHLY (ONCE EVERY FOUR WEEKS)
  4. ZYRTEC [Concomitant]
     Active Substance: CETIRIZINE HYDROCHLORIDE
     Indication: Seasonal allergy
     Dosage: CHILDREN^S ZYRTEC IS AS NEEDED
  5. TRIAMCINOLONE ACETONIDE [Concomitant]
     Active Substance: TRIAMCINOLONE ACETONIDE
     Dosage: 0.1 %, AS NEEDED
  6. TRIAMCINOLONE ACETONIDE [Concomitant]
     Active Substance: TRIAMCINOLONE ACETONIDE
     Dosage: 0.25 %, AS NEEDED
  7. TRIAMCINOLONE ACETONIDE [Concomitant]
     Active Substance: TRIAMCINOLONE ACETONIDE
     Dosage: 0.025 %
  8. ELIDEL [Concomitant]
     Active Substance: PIMECROLIMUS
     Dosage: 1 %, AS NEEDED
  9. DESONIDE [Concomitant]
     Active Substance: DESONIDE
     Dosage: 0.5 %, AS NEEDED
  10. TACROLIMUS [Concomitant]
     Active Substance: TACROLIMUS
     Indication: Seasonal allergy
     Dosage: 0.3 %, AS NEEDED

REACTIONS (4)
  - Injection site mass [Unknown]
  - Injection site discharge [Unknown]
  - Device leakage [Unknown]
  - Device physical property issue [Unknown]
